FAERS Safety Report 23252264 (Version 1)
Quarter: 2023Q4

REPORT INFORMATION
  Report Type: Report from Study
  Country: FR (occurrence: FR)
  Receive Date: 20231201
  Receipt Date: 20231201
  Transmission Date: 20240110
  Serious: Yes (Death, Other)
  Sender: FDA-Public Use
  Company Number: FR-SA-2023SA371576

PATIENT

DRUGS (5)
  1. OXALIPLATIN [Suspect]
     Active Substance: OXALIPLATIN
     Indication: Colorectal cancer
     Dosage: QOW , GIVEN AS A 2-HOUR INFUSION IN 250 ML OF DEXTROSE 5%, CONCURRENT WITH LEUCOVORIN .
     Route: 041
  2. LEUCOVORIN [Suspect]
     Active Substance: LEUCOVORIN\LEUCOVORIN CALCIUM
     Indication: Colorectal cancer
     Dosage: 200 MG/M2, QD,GIVEN AS 2-HOUR INFUSION FOLLOWED BY BOLUS 5FU 400 MG/M2/D AND A 22-HOUR INFUSION OF 5
     Route: 041
  3. FLUOROURACIL [Suspect]
     Active Substance: FLUOROURACIL
     Indication: Colorectal cancer
     Dosage: 400 MG/M2, QD, BOLUS, REPEATED FOR 2 CONSECUTIVE DAYS EVERY 2 WEEK
     Route: 040
  4. FLUOROURACIL [Suspect]
     Active Substance: FLUOROURACIL
     Dosage: 600 MG/M2, QD GIVEN AS A 22-HOUR INFUSION REPEATED FOR 2 CONSECUTIVE DAYS EVERY 2 WEEK
     Route: 041
  5. DEXTROSE [Concomitant]
     Active Substance: DEXTROSE\DEXTROSE MONOHYDRATE
     Dosage: OXALIPLATIN AND LEUCOVORINE WAS GIVEN GIVEN AS A 2-HOUR INFUSION IN 250 ML OF DEXTROSE 5%

REACTIONS (2)
  - Haematotoxicity [Fatal]
  - Gastrointestinal toxicity [Fatal]
